FAERS Safety Report 13611234 (Version 3)
Quarter: 2017Q2

REPORT INFORMATION
  Report Type: Spontaneous
  Country: TW (occurrence: TW)
  Receive Date: 20170603
  Receipt Date: 20170616
  Transmission Date: 20170830
  Serious: Yes (Hospitalization)
  Sender: FDA-Public Use
  Company Number: TW-AMGEN-TWNSP2017084054

PATIENT
  Age: 46 Year
  Sex: Male

DRUGS (3)
  1. ENBREL [Suspect]
     Active Substance: ETANERCEPT
     Indication: PSORIATIC ARTHROPATHY
     Dosage: 25 MG, 2X/WEEK (BIW)
     Route: 058
     Dates: start: 20170302, end: 201704
  2. ENBREL [Suspect]
     Active Substance: ETANERCEPT
     Dosage: 25 MG, QW
     Route: 065
     Dates: start: 20170608
  3. ENBREL [Suspect]
     Active Substance: ETANERCEPT
     Dosage: 2X/WEEK (BIW)
     Route: 058
     Dates: start: 201704

REACTIONS (4)
  - Pyrexia [Not Recovered/Not Resolved]
  - Lymphadenopathy [Unknown]
  - Viral upper respiratory tract infection [Recovered/Resolved]
  - Histiocytic necrotising lymphadenitis [Unknown]

NARRATIVE: CASE EVENT DATE: 201704
